FAERS Safety Report 18376246 (Version 1)
Quarter: 2020Q4

REPORT INFORMATION
  Report Type: Report from Study
  Country: MX (occurrence: MX)
  Receive Date: 20201013
  Receipt Date: 20201013
  Transmission Date: 20210114
  Serious: Yes (Death)
  Sender: FDA-Public Use
  Company Number: NVSC2020MX274021

PATIENT
  Age: 77 Year
  Sex: Male
  Weight: 80 kg

DRUGS (1)
  1. ENTRESTO [Suspect]
     Active Substance: SACUBITRIL\VALSARTAN
     Indication: CARDIAC DISORDER
     Dosage: 2 DF, BID (50 MG ONE IN THE MORNING AND ONE AT NIGHT)
     Route: 065
     Dates: start: 202002, end: 20200303

REACTIONS (2)
  - Renal failure [Fatal]
  - Product use in unapproved indication [Unknown]
